FAERS Safety Report 20832591 (Version 1)
Quarter: 2022Q2

REPORT INFORMATION
  Report Type: Spontaneous
  Country: US (occurrence: US)
  Receive Date: 20220516
  Receipt Date: 20220516
  Transmission Date: 20220721
  Serious: No
  Sender: FDA-Public Use
  Company Number: US-GLAUKOS-AVE-2022-0048-AE

PATIENT
  Sex: Male

DRUGS (4)
  1. PHOTREXA VISCOUS [Suspect]
     Active Substance: RIBOFLAVIN 5^-PHOSPHATE SODIUM
     Indication: Keratoconus
     Route: 047
     Dates: start: 20220211, end: 20220211
  2. PHOTREXA [Suspect]
     Active Substance: RIBOFLAVIN 5^-PHOSPHATE SODIUM
     Indication: Keratoconus
     Route: 047
     Dates: start: 20220211, end: 20220211
  3. DEVICE [Suspect]
     Active Substance: DEVICE
     Indication: Keratoconus
     Route: 047
  4. DEVICE [Suspect]
     Active Substance: DEVICE

REACTIONS (2)
  - Corneal infiltrates [Unknown]
  - Corneal epithelium defect [Unknown]

NARRATIVE: CASE EVENT DATE: 20220214
